FAERS Safety Report 17928037 (Version 1)
Quarter: 2020Q2

REPORT INFORMATION
  Report Type: Other
  Country: MK (occurrence: MK)
  Receive Date: 20200622
  Receipt Date: 20200622
  Transmission Date: 20200714
  Serious: Yes (Hospitalization)
  Sender: FDA-Public Use
  Company Number: MK-B.BRAUN MEDICAL INC.-2086516

PATIENT
  Age: 70 Year
  Sex: Male

DRUGS (3)
  1. SODIUM CHLORIDE INJECTION USP 0264-7800-09 [Suspect]
     Active Substance: SODIUM CHLORIDE
     Indication: ECHINOCOCCIASIS
     Route: 050
  2. DEXTROSE. [Concomitant]
     Active Substance: DEXTROSE
     Route: 042
  3. 0.9% SODIUM CHLORIDE [Concomitant]
     Active Substance: SODIUM CHLORIDE
     Route: 042

REACTIONS (4)
  - Disturbance in attention [Recovered/Resolved]
  - Hypernatraemia [Recovered/Resolved]
  - Confusional state [Recovered/Resolved]
  - Somnolence [Recovered/Resolved]
